FAERS Safety Report 6163351-9 (Version None)
Quarter: 2009Q2

REPORT INFORMATION
  Report Type: 
  Country: None (occurrence: None)
  Receive Date: 20090422
  Receipt Date: 20090417
  Transmission Date: 20091009
  Serious: Yes (Hospitalization)
  Sender: FDA-Public Use
  Company Number: JP-ASTRAZENECA-2009AP02729

PATIENT
  Age: 66 Year
  Sex: Male
  Weight: 73 kg

DRUGS (7)
  1. TENORMIN [Suspect]
     Indication: HYPERTENSION
     Route: 048
     Dates: start: 20090110, end: 20090202
  2. ASPIRIN [Concomitant]
     Route: 048
  3. HALFDIGOXIN [Concomitant]
     Route: 048
  4. ZYLORIC [Concomitant]
     Route: 048
  5. NOVOLIN R [Concomitant]
     Dosage: DOSE UNKNOWN
     Route: 058
  6. LASIX [Concomitant]
     Route: 048
  7. DIOVAN [Concomitant]
     Route: 048

REACTIONS (1)
  - INTERSTITIAL LUNG DISEASE [None]
